FAERS Safety Report 9050521 (Version 1)
Quarter: 2013Q1

REPORT INFORMATION
  Report Type: Spontaneous
  Country: IT (occurrence: IT)
  Receive Date: 20130205
  Receipt Date: 20130205
  Transmission Date: 20140127
  Serious: Yes (Other)
  Sender: FDA-Public Use
  Company Number: PHHY2013IT009290

PATIENT
  Age: 73 Year
  Sex: Female

DRUGS (7)
  1. GEMCITABINE [Suspect]
     Indication: OVARIAN CANCER
     Dosage: 1500 MG, CYCLIC
     Route: 042
     Dates: start: 20121109, end: 20130122
  2. CARBOPLATIN [Suspect]
     Indication: OVARIAN CANCER
     Dosage: 350 MG, CYCLIC
     Route: 042
     Dates: start: 20121110, end: 20121205
  3. MODURETIC [Concomitant]
  4. CLEXANE [Concomitant]
  5. ZARELIS [Concomitant]
  6. TAVOR (LORAZEPAM) [Concomitant]
  7. LAEVOLAC [Concomitant]

REACTIONS (4)
  - Abdominal pain [Recovered/Resolved]
  - Hyperhidrosis [Recovered/Resolved]
  - Paraesthesia [Recovered/Resolved]
  - Vomiting [Recovered/Resolved]
